FAERS Safety Report 11251139 (Version 2)
Quarter: 2016Q2

REPORT INFORMATION
  Report Type: Spontaneous
  Country: US (occurrence: US)
  Receive Date: 20150708
  Receipt Date: 20160627
  Transmission Date: 20160815
  Serious: No
  Sender: FDA-Public Use
  Company Number: US-DSJP-DSU-2015-111436

PATIENT
  Sex: Female
  Weight: 64.85 kg

DRUGS (2)
  1. INVOKANA [Concomitant]
     Active Substance: CANAGLIFLOZIN
     Indication: DIABETES MELLITUS
     Dosage: 300 MG, UNK
  2. WELCHOL [Suspect]
     Active Substance: COLESEVELAM HYDROCHLORIDE
     Indication: BLOOD CHOLESTEROL INCREASED
     Dosage: 1875 MG, BID
     Route: 048
     Dates: start: 201503

REACTIONS (2)
  - Constipation [Unknown]
  - Abdominal distension [Unknown]

NARRATIVE: CASE EVENT DATE: 2015
